FAERS Safety Report 5277356-3 (Version None)
Quarter: 2007Q1

REPORT INFORMATION
  Report Type: 
  Country: None (occurrence: None)
  Receive Date: 20061213
  Receipt Date: 20040908
  Transmission Date: 20070707
  Serious: No
  Sender: FDA-Public Use
  Company Number: 2004UW08948

PATIENT
  Age: 7 Year
  Sex: Male
  Weight: 33.5662 kg

DRUGS (9)
  1. SEROQUEL [Suspect]
     Indication: BIPOLAR DISORDER
     Dosage: 300 MG DAILY PO
     Route: 048
     Dates: start: 20031101
  2. DEPAKOTE [Suspect]
     Dosage: 250 MG DAILY
     Dates: start: 20030326, end: 20030601
  3. RISPERDAL [Suspect]
     Dosage: 0.75 MG DAILY
     Dates: start: 20030528, end: 20031001
  4. TRILEPTAL [Suspect]
     Dosage: 750 MG DAILY
     Dates: start: 20030601, end: 20031104
  5. TENEX [Suspect]
     Dosage: 1.5 MG DAILY
     Dates: start: 20030601, end: 20031027
  6. LITHIUM CARBONATE [Concomitant]
  7. TEGRETOL [Concomitant]
  8. GABITRIL [Concomitant]
  9. ZYPREXA [Concomitant]

REACTIONS (3)
  - HYPERGLYCAEMIA [None]
  - HYPOGLYCAEMIA [None]
  - LIPIDS INCREASED [None]
